FAERS Safety Report 5658293-9 (Version None)
Quarter: 2008Q1

REPORT INFORMATION
  Report Type: 
  Country: None (occurrence: None)
  Receive Date: 20080310
  Receipt Date: 20070122
  Transmission Date: 20080703
  Serious: No
  Sender: FDA-Public Use
  Company Number: US-BAYER-200710242BCC

PATIENT
  Age: 25 Year
  Sex: Female
  Weight: 112 kg

DRUGS (1)
  1. ALEVE [Suspect]
     Indication: TOOTHACHE
     Dosage: UNIT DOSE: 220 MG
     Route: 048
     Dates: start: 20070120, end: 20070122

REACTIONS (2)
  - ABDOMINAL PAIN [None]
  - HOT FLUSH [None]
